FAERS Safety Report 11383678 (Version 2)
Quarter: 2015Q4

REPORT INFORMATION
  Report Type: Spontaneous
  Country: US (occurrence: US)
  Receive Date: 20150814
  Receipt Date: 20151012
  Transmission Date: 20160304
  Serious: Yes (Other)
  Sender: FDA-Public Use
  Company Number: US-ALLERGAN-1515879US

PATIENT

DRUGS (1)
  1. TROSPIUM CHLORIDE UNK [Suspect]
     Active Substance: TROSPIUM CHLORIDE
     Indication: BLADDER SPASM
     Dosage: 60 MG, QD
     Route: 048

REACTIONS (1)
  - Hyperproteinaemia [Unknown]

NARRATIVE: CASE EVENT DATE: 2015
